FAERS Safety Report 5590829-9 (Version None)
Quarter: 2008Q1

REPORT INFORMATION
  Report Type: 
  Country: None (occurrence: None)
  Receive Date: 20080110
  Receipt Date: 20080107
  Transmission Date: 20080703
  Serious: Yes (Life-Threatening, Hospitalization)
  Sender: FDA-Public Use
  Company Number: PHFR2008GB00466

PATIENT
  Age: 86 Year
  Sex: Female

DRUGS (12)
  1. DUCLOFENAC(DICLOFENAC) UNKNOWN [Suspect]
     Dosage: 50 MG, TID, ORAL
     Route: 048
     Dates: start: 20071212, end: 20071220
  2. ASPIRIN [Suspect]
     Dosage: 150MG DAILY, ORAL
     Route: 048
     Dates: end: 20071220
  3. PREDNISONE [Suspect]
     Dosage: 5MG, QD, ORAL
     Route: 048
     Dates: start: 20071212, end: 20071220
  4. DOXAZOSIN MESYLATE [Concomitant]
  5. FUROSEMIDE [Concomitant]
  6. ISOSORBIDE MONONITRATE [Concomitant]
  7. LOSARTAN POTASSIUM [Concomitant]
  8. SALBUTAMOL (SALBUTAMOL) [Concomitant]
  9. SERETIDE (FLUTICASONE PROPIONATE, SALMETEROL XINAFOATE) [Concomitant]
  10. SPIRONOLACTONE [Concomitant]
  11. THEOPHYLLINE [Concomitant]
  12. TIOTROPIUM BROMIDE (TIOTROPIUM BROMIDE) [Concomitant]

REACTIONS (3)
  - HAEMATEMESIS [None]
  - HYPOTENSION [None]
  - OESOPHAGITIS [None]
